FAERS Safety Report 21763526 (Version 2)
Quarter: 2022Q4

REPORT INFORMATION
  Report Type: Report from Study
  Country: FR (occurrence: None)
  Receive Date: 20221221
  Receipt Date: 20221228
  Transmission Date: 20230113
  Serious: Yes (Life-Threatening, Other)
  Sender: FDA-Public Use
  Company Number: 2022A411725

PATIENT
  Age: 26096 Day
  Sex: Male
  Weight: 77 kg

DRUGS (19)
  1. EVUSHELD [Suspect]
     Active Substance: CILGAVIMAB\TIXAGEVIMAB
     Indication: COVID-19 prophylaxis
     Dosage: ONCE/SINGLE ADMINISTRATION, 300 MG (TIXAGEVIMAB 150 MG/ CILGAVIMAB 150 MG) ? 1ST DOSE
     Route: 030
     Dates: start: 20220808
  2. PROGRAF [Concomitant]
     Active Substance: TACROLIMUS
     Indication: Immunosuppressant drug therapy
     Dosage: 8 A.M. AND 8 P.M
     Route: 065
  3. MYFORTIC [Concomitant]
     Active Substance: MYCOPHENOLATE SODIUM
     Indication: Immunosuppressant drug therapy
     Dosage: 8 A.M. AND 8 P.M
     Route: 065
  4. PREDNISONE [Concomitant]
     Active Substance: PREDNISONE
     Indication: Immunosuppressant drug therapy
     Dosage: 8 A.M
     Route: 065
  5. VALACYCLOVIR HYDROCHLORIDE [Concomitant]
     Active Substance: VALACYCLOVIR HYDROCHLORIDE
     Indication: Antiviral treatment
     Dosage: AT NOON
     Route: 065
  6. OROCAL [Concomitant]
     Indication: Osteoporosis
     Dosage: 500 MG/ 1000 UI TWO TABLETS AT NOON
     Route: 065
  7. FOSAMAX [Concomitant]
     Active Substance: ALENDRONATE SODIUM
     Indication: Osteoporosis
     Dosage: 70 ONCE A WEEK
     Route: 065
  8. ESOMEPRAZOLE [Concomitant]
     Active Substance: ESOMEPRAZOLE
     Indication: Gastrointestinal disorder
     Dosage: 40 MG AT 8 P.M.
     Route: 065
  9. BISOPROLOL [Concomitant]
     Active Substance: BISOPROLOL
     Indication: Blood pressure abnormal
     Dosage: 2.5 MG AT NOON
     Route: 065
  10. RAMIPRIL [Concomitant]
     Active Substance: RAMIPRIL
     Indication: Hypertension
     Dosage: 5 MG AT 8 A.M.
     Route: 065
  11. KARDEGIC [Concomitant]
     Active Substance: ASPIRIN DL-LYSINE
     Indication: Antiplatelet therapy
     Dosage: 160 MG AT NOON
     Route: 065
  12. VASTEN [Concomitant]
     Indication: Blood cholesterol decreased
     Dosage: 20 MG AT 8 P.M.
     Route: 065
  13. DAFALGAN [Concomitant]
     Active Substance: ACETAMINOPHEN
     Indication: Analgesic therapy
     Dosage: 1G IF PAIN AND MAXIMUM 4 PER DAY
     Route: 065
  14. IMODIUM [Concomitant]
     Active Substance: LOPERAMIDE HYDROCHLORIDE
     Indication: Diarrhoea
     Dosage: 2MG 1 TABLET IF NECESSARY AND MAXIMUM 4 PER DAY
     Route: 065
  15. ELUDRIL PRO [Concomitant]
     Dosage: 15 ML THREE TIMES A DAY
     Route: 065
  16. GABAPENTIN [Concomitant]
     Active Substance: GABAPENTIN
     Dosage: 600 MG:2 AT 8 A.M, 1 AT NOON AND 2 AT 8 P.M.
     Route: 065
  17. MIANSERIN HYDROCHLORIDE [Concomitant]
     Active Substance: MIANSERIN HYDROCHLORIDE
     Dosage: 30 MG AT 8 P.M
     Route: 065
  18. MAGNESIUM MAG [Concomitant]
     Dosage: 122 MG 2 AT 8 A.M. AND 2 AT 8 P.M
     Route: 065
  19. ZITHROMAX [Concomitant]
     Active Substance: AZITHROMYCIN DIHYDRATE
     Dosage: 250 MG AT MIDDAY ON MONDAY WEDNESDAY AND FRIDAY
     Route: 065

REACTIONS (3)
  - Bradycardia [Recovered/Resolved]
  - Atrioventricular block complete [Recovered/Resolved]
  - Product administration error [Unknown]

NARRATIVE: CASE EVENT DATE: 20220808
